FAERS Safety Report 4980741-8 (Version None)
Quarter: 2006Q2

REPORT INFORMATION
  Report Type: 
  Country: None (occurrence: None)
  Receive Date: 20060424
  Receipt Date: 20050112
  Transmission Date: 20061013
  Serious: Yes (Hospitalization, Other)
  Sender: FDA-Public Use
  Company Number: US-MERCK-0501USA01851

PATIENT
  Age: 60 Year
  Sex: Female
  Weight: 76 kg

DRUGS (1)
  1. VIOXX [Suspect]
     Indication: PAIN
     Route: 048
     Dates: start: 20000101, end: 20040101

REACTIONS (44)
  - ABDOMINAL PAIN UPPER [None]
  - ACIDOSIS [None]
  - ACUTE RESPIRATORY FAILURE [None]
  - ANXIETY DISORDER [None]
  - ARTERIOSCLEROSIS CORONARY ARTERY [None]
  - BACTERAEMIA [None]
  - BRONCHITIS [None]
  - BUNDLE BRANCH BLOCK LEFT [None]
  - CAROTID ARTERY STENOSIS [None]
  - CHRONIC OBSTRUCTIVE PULMONARY DISEASE [None]
  - CORONARY ARTERY DISEASE [None]
  - DEHYDRATION [None]
  - DEPRESSION [None]
  - DYSPNOEA [None]
  - EMPHYSEMA [None]
  - GASTRITIS [None]
  - HAEMORRHOIDS [None]
  - HYPERCHOLESTEROLAEMIA [None]
  - HYPERKALAEMIA [None]
  - HYPERLIPIDAEMIA [None]
  - HYPERTENSION [None]
  - HYPOKALAEMIA [None]
  - HYPOMAGNESAEMIA [None]
  - HYPOTENSION [None]
  - INTERMITTENT CLAUDICATION [None]
  - IRRITABLE BOWEL SYNDROME [None]
  - ISCHAEMIC HEPATITIS [None]
  - MYOCARDIAL INFARCTION [None]
  - PALPITATIONS [None]
  - PEPTIC ULCER [None]
  - PERIPHERAL VASCULAR DISORDER [None]
  - PLEURAL EFFUSION [None]
  - PNEUMONIA [None]
  - PRESCRIBED OVERDOSE [None]
  - RASH [None]
  - RECTAL HAEMORRHAGE [None]
  - RENAL FAILURE [None]
  - RENAL IMPAIRMENT [None]
  - SEPSIS [None]
  - STAPHYLOCOCCAL INFECTION [None]
  - TRANSIENT ISCHAEMIC ATTACK [None]
  - ULCER [None]
  - WEIGHT INCREASED [None]
  - WHEEZING [None]
